FAERS Safety Report 23942853 (Version 3)
Quarter: 2024Q3

REPORT INFORMATION
  Report Type: Spontaneous
  Country: JP (occurrence: None)
  Receive Date: 20240605
  Receipt Date: 20240712
  Transmission Date: 20241017
  Serious: Yes (Other)
  Sender: ASTRAZENECA
  Company Number: 2024A127306

PATIENT
  Age: 81 Year
  Sex: Female

DRUGS (2)
  1. ONDEXXYA [Suspect]
     Active Substance: ANDEXANET ALFA
     Indication: Cerebral haemorrhage
     Dosage: 800 MG IV AT A RATE OF 30 MG/MIN FOLLOWED BY 960 MG IV AT A RATE OF 8 MG/MIN FOR 2 H1760.0MG UNKNOWN
     Route: 042
     Dates: start: 202310, end: 202310
  2. EDOXABAN TOSYLATE [Suspect]
     Active Substance: EDOXABAN TOSYLATE
     Dosage: DOSE UNKNOWN60.0MG UNKNOWN
     Route: 048

REACTIONS (1)
  - Upper gastrointestinal haemorrhage [Unknown]
